FAERS Safety Report 5412806-0 (Version None)
Quarter: 2007Q3

REPORT INFORMATION
  Report Type: 
  Country: None (occurrence: None)
  Receive Date: 20070813
  Receipt Date: 20070731
  Transmission Date: 20080115
  Serious: No
  Sender: FDA-Public Use
  Company Number: CL-ELI_LILLY_AND_COMPANY-CL200708000273

PATIENT
  Age: 9 Year
  Sex: Female

DRUGS (3)
  1. STRATTERA [Suspect]
     Dosage: 30 MG, DAILY (1/D)
     Route: 048
  2. STRATTERA [Suspect]
     Dosage: 10 MG, DAILY (1/D)
     Route: 048
     Dates: start: 20070201
  3. STRATTERA [Suspect]
     Dosage: 18 MG, UNK

REACTIONS (3)
  - APATHY [None]
  - SYNCOPE [None]
  - WEIGHT DECREASED [None]
